FAERS Safety Report 7790992-5 (Version None)
Quarter: 2011Q4

REPORT INFORMATION
  Report Type: 
  Country: None (occurrence: None)
  Receive Date: 20111002
  Receipt Date: 20110928
  Transmission Date: 20120403
  Serious: Yes (Other)
  Sender: FDA-Public Use
  Company Number: US-BRISTOL-MYERS SQUIBB COMPANY-16109340

PATIENT
  Age: 19 Year

DRUGS (6)
  1. ABILIFY [Suspect]
     Indication: BIPOLAR DISORDER
     Dosage: STARTED 6 YEARS AGO
  2. LEXAPRO [Suspect]
     Indication: BIPOLAR DISORDER
     Dosage: STARTED 6 YEARS AGO
  3. TOPAMAX [Suspect]
  4. IMITREX [Concomitant]
  5. ABILIFY [Suspect]
     Indication: DEPRESSION
     Dosage: STARTED 6 YEARS AGO
  6. LEXAPRO [Suspect]
     Indication: DEPRESSION
     Dosage: STARTED 6 YEARS AGO

REACTIONS (2)
  - SUICIDE ATTEMPT [None]
  - HEPATIC FAILURE [None]
